FAERS Safety Report 7834092-4 (Version None)
Quarter: 2011Q4

REPORT INFORMATION
  Report Type: 
  Country: None (occurrence: None)
  Receive Date: 20111024
  Receipt Date: 20111024
  Transmission Date: 20120403
  Serious: Yes (Hospitalization)
  Sender: FDA-Public Use
  Company Number: None

PATIENT
  Age: 62 Year
  Sex: Male
  Weight: 68.038 kg

DRUGS (1)
  1. FLUOROURACIL [Suspect]
     Indication: COLON CANCER
     Dosage: 4608 MG IN AMBULATORY PUMP
     Route: 042
     Dates: start: 20110927, end: 20110929

REACTIONS (1)
  - METABOLIC ENCEPHALOPATHY [None]
